FAERS Safety Report 8330372-7 (Version None)
Quarter: 2012Q2

REPORT INFORMATION
  Report Type: 
  Country: None (occurrence: None)
  Receive Date: 20120502
  Receipt Date: 20120413
  Transmission Date: 20120825
  Serious: No
  Sender: FDA-Public Use
  Company Number: US-AMGEN-USASP2011069571

PATIENT
  Age: 51 Year
  Sex: Male

DRUGS (3)
  1. ENBREL [Suspect]
     Indication: RHEUMATOID ARTHRITIS
     Dosage: 25 MG, 2 TIMES/WK
     Dates: start: 19991101
  2. METHOTREXATE [Concomitant]
     Dosage: UNK
     Dates: start: 20000101
  3. METHOTREXATE [Concomitant]
     Dosage: 1 MG, QWK
     Dates: start: 19990101

REACTIONS (18)
  - RHEUMATOID ARTHRITIS [None]
  - ORAL DISCOMFORT [None]
  - THERAPEUTIC RESPONSE DECREASED [None]
  - MALAISE [None]
  - BLOOD POTASSIUM DECREASED [None]
  - OEDEMA MOUTH [None]
  - ABDOMINAL PAIN UPPER [None]
  - THROAT IRRITATION [None]
  - DYSPEPSIA [None]
  - TOOTH FRACTURE [None]
  - INJECTION SITE HAEMATOMA [None]
  - PHARYNGEAL OEDEMA [None]
  - SWELLING [None]
  - FEELING HOT [None]
  - ARTHRALGIA [None]
  - PAIN [None]
  - ORAL FUNGAL INFECTION [None]
  - VEIN DISORDER [None]
